FAERS Safety Report 24096578 (Version 4)
Quarter: 2024Q3

REPORT INFORMATION
  Report Type: Spontaneous
  Country: BR (occurrence: BR)
  Receive Date: 20240716
  Receipt Date: 20240909
  Transmission Date: 20241016
  Serious: Yes (Other)
  Sender: MERCK
  Company Number: BR-009507513-2407BRA008968

PATIENT
  Age: 87 Year
  Sex: Female
  Weight: 60 kg

DRUGS (17)
  1. JANUVIA [Suspect]
     Active Substance: SITAGLIPTIN PHOSPHATE
     Indication: Type 2 diabetes mellitus
     Dosage: 1 TABLET AFTER BREAKFAST
     Route: 048
     Dates: start: 2004
  2. JANUVIA [Suspect]
     Active Substance: SITAGLIPTIN PHOSPHATE
     Dosage: HALF TABLET AFTER BREAKFAST
     Route: 048
     Dates: start: 202406
  3. JANUVIA [Suspect]
     Active Substance: SITAGLIPTIN PHOSPHATE
     Dosage: 50 MILLIGRAM
     Route: 048
     Dates: start: 2024
  4. DEXILANT [Suspect]
     Active Substance: DEXLANSOPRAZOLE
     Route: 065
     Dates: start: 20240107
  5. LEVOTHYROXINE [Concomitant]
     Active Substance: LEVOTHYROXINE\LEVOTHYROXINE SODIUM
     Indication: Hypothyroidism
     Dosage: UNK
     Dates: start: 2004
  6. LEVOTHYROXINE [Concomitant]
     Active Substance: LEVOTHYROXINE\LEVOTHYROXINE SODIUM
     Dosage: 1 TABLET WITH EMPTY STOMACH
     Route: 048
     Dates: start: 2018
  7. GLIMEPIRIDE [Concomitant]
     Active Substance: GLIMEPIRIDE
     Indication: Type 2 diabetes mellitus
     Dosage: HALF TABLET A DAY
     Route: 048
  8. LOSARTAN POTASSIUM [Concomitant]
     Active Substance: LOSARTAN POTASSIUM
     Indication: Hypertension
     Dosage: 5 MG 2 TABLETS EVERY 12 HOURS
     Route: 048
     Dates: start: 1993
  9. HYDROCHLOROTHIAZIDE [Concomitant]
     Active Substance: HYDROCHLOROTHIAZIDE
     Indication: Hypertension
     Dosage: 25MG 1 TABLET
     Route: 048
     Dates: start: 1993
  10. DPREV [Concomitant]
     Indication: Vitamin supplementation
     Dosage: 1000 IU 1 TABLET AFTER LUNCH
     Route: 048
  11. ESOMEPRAZOLE MAGNESIUM [Concomitant]
     Active Substance: ESOMEPRAZOLE MAGNESIUM
     Indication: Abdominal pain upper
     Dosage: 1 TABLET WITH EMPTY STOMACH 30 MINUTES BEFORE BREAKFAST
     Route: 048
     Dates: start: 1994
  12. DULOXETINE HYDROCHLORIDE [Concomitant]
     Active Substance: DULOXETINE HYDROCHLORIDE
     Indication: Pain
     Dosage: 1 TABLET A DAY
     Route: 048
  13. ZETIA [Concomitant]
     Active Substance: EZETIMIBE
     Indication: Hypertension
     Dosage: 10MG 1 TABLET AT NIGHT
     Route: 048
  14. DIOSMIN [Concomitant]
     Active Substance: DIOSMIN
     Indication: Vitamin supplementation
     Dosage: 1 TABLET TWICE A DAY
     Route: 048
  15. DOMPERIDONE [Concomitant]
     Active Substance: DOMPERIDONE
     Indication: Gastrooesophageal reflux disease
     Dosage: 3 TABLETS A DAY (BREAKFAST, LUNCH, AND DINNER)
     Route: 048
  16. CLOPIDOGREL BISULFATE [Concomitant]
     Active Substance: CLOPIDOGREL BISULFATE
     Indication: Vasodilatation
     Dosage: 75MG 1 TABLET PER DAY
     Route: 048
     Dates: start: 2020
  17. OSCAL D [CALCIUM CARBONATE;COLECALCIFEROL] [Concomitant]
     Dosage: 1 CUP A DAY AFTER LUNCH USED SEASONALLY ACCORDING TO PHYSICIAN RECOMMENDATION

REACTIONS (48)
  - Biliary colic [Recovered/Resolved]
  - Urinary retention [Unknown]
  - Drug-induced liver injury [Recovered/Resolved]
  - Pneumonia [Recovered/Resolved]
  - Pulmonary oedema [Recovered/Resolved]
  - Abnormal dreams [Recovered/Resolved]
  - Fall [Recovered/Resolved]
  - Lower limb fracture [Recovered/Resolved]
  - Ankle fracture [Recovered/Resolved]
  - Muscular weakness [Unknown]
  - Muscle atrophy [Unknown]
  - Tongue discolouration [Recovered/Resolved]
  - Skin discolouration [Recovered/Resolved]
  - Eye colour change [Recovered/Resolved]
  - Tooth fracture [Unknown]
  - Ill-defined disorder [Unknown]
  - Influenza [Recovered/Resolved]
  - Cough [Recovered/Resolved]
  - Oropharyngeal pain [Recovered/Resolved]
  - Cough [Recovered/Resolved]
  - Nasopharyngitis [Recovered/Resolved]
  - Blood pressure increased [Recovered/Resolved]
  - Peripheral swelling [Recovered/Resolved]
  - Malaise [Recovered/Resolved]
  - Marasmus [Recovered/Resolved]
  - Weight decreased [Unknown]
  - Aphonia [Not Recovered/Not Resolved]
  - Incorrect dose administered [Recovered/Resolved]
  - Product availability issue [Recovered/Resolved]
  - Wrong technique in product usage process [Unknown]
  - Musculoskeletal discomfort [Unknown]
  - Musculoskeletal discomfort [Unknown]
  - Balance disorder [Unknown]
  - Pruritus [Recovered/Resolved]
  - Blister [Recovered/Resolved]
  - Dry skin [Recovered/Resolved]
  - Vulvovaginal mycotic infection [Recovered/Resolved]
  - Influenza [Recovered/Resolved]
  - Influenza [Recovered/Resolved]
  - Cough [Unknown]
  - Weight decreased [Recovering/Resolving]
  - Mobility decreased [Unknown]
  - Feeling abnormal [Unknown]
  - Hypoaesthesia [Unknown]
  - Poor quality sleep [Unknown]
  - Peripheral swelling [Unknown]
  - Skin exfoliation [Recovering/Resolving]
  - Anxiety [Unknown]

NARRATIVE: CASE EVENT DATE: 20200101
